FAERS Safety Report 21773995 (Version 1)
Quarter: 2022Q4

REPORT INFORMATION
  Report Type: Spontaneous
  Country: US (occurrence: US)
  Receive Date: 20221223
  Receipt Date: 20221223
  Transmission Date: 20230113
  Serious: No
  Sender: FDA-Public Use
  Company Number: US-BAUSCH-BL-2022-027515

PATIENT
  Age: 56 Year
  Sex: Female

DRUGS (1)
  1. PLENVU [Suspect]
     Active Substance: ASCORBIC ACID\POLYETHYLENE GLYCOL 3350\POTASSIUM CHLORIDE\SODIUM ASCORBATE\SODIUM CHLORIDE\SODIUM SU
     Indication: Bowel preparation
     Route: 048
     Dates: start: 20221214, end: 20221214

REACTIONS (4)
  - Peripheral coldness [Unknown]
  - Anxiety [Unknown]
  - Vomiting projectile [Unknown]
  - Nausea [Unknown]

NARRATIVE: CASE EVENT DATE: 20221214
